FAERS Safety Report 8731026 (Version 2)
Quarter: 2012Q4

REPORT INFORMATION
  Report Type: 
  Country: US (occurrence: None)
  Receive Date: 20120730
  Receipt Date: 20120808
  Transmission Date: 20130627
  Serious: Yes (Death)
  Sender: FDA-Public Use
  Company Number: AEUSA201200374

PATIENT
  Age: 62 Year
  Sex: Male
  Weight: 90 kg

DRUGS (1)
  1. PROFILNINE SD [Suspect]
     Indication: COAGULOPATHY
     Dosage: 50 IU/KG;1X;IV
     Route: 042
     Dates: start: 20120630, end: 20120630

REACTIONS (2)
  - HYPOTENSION [None]
  - DISSEMINATED INTRAVASCULAR COAGULATION [None]
